FAERS Safety Report 6399791-2 (Version None)
Quarter: 2009Q4

REPORT INFORMATION
  Report Type: 
  Country: None (occurrence: None)
  Receive Date: 20091014
  Receipt Date: 20091006
  Transmission Date: 20100525
  Serious: Yes (Other)
  Sender: FDA-Public Use
  Company Number: GB-PFIZER INC-2009280820

PATIENT

DRUGS (1)
  1. DEPO-PROVERA [Suspect]
     Dosage: UNK
     Route: 030
     Dates: start: 20090618

REACTIONS (7)
  - HEART RATE INCREASED [None]
  - HYPERSENSITIVITY [None]
  - PAIN OF SKIN [None]
  - PARAESTHESIA [None]
  - RASH GENERALISED [None]
  - SKIN BURNING SENSATION [None]
  - SNEEZING [None]
